FAERS Safety Report 10329566 (Version 1)
Quarter: 2014Q3

REPORT INFORMATION
  Report Type: Spontaneous
  Country: TH (occurrence: None)
  Receive Date: 20140717
  Receipt Date: 20140717
  Transmission Date: 20150326
  Serious: Yes (Hospitalization)
  Sender: FDA-Public Use
  Company Number: VAL_03208_2014

PATIENT
  Age: 71 Year
  Sex: Female

DRUGS (6)
  1. CALTRATE PLUS /01438001/ [Concomitant]
  2. VITAMIN E NATURAL /00110501/ [Concomitant]
  3. ROCALTROL [Suspect]
     Active Substance: CALCITRIOL
     Indication: OSTEOPOROSIS
     Route: 048
     Dates: start: 20140401, end: 2014
  4. GINGROMIN [Concomitant]
  5. PROTAXOS (PROTAXOS - STRONTIUM RANELATE) (NOT SPECIFIED) [Suspect]
     Active Substance: STRONTIUM RANELATE
     Indication: OSTEOPOROSIS
     Dosage: 1 SATCHET IN THE EVENING
     Route: 048
     Dates: start: 20140401
  6. GINSANA G 115 [Concomitant]

REACTIONS (4)
  - Drug reaction with eosinophilia and systemic symptoms [None]
  - Back injury [None]
  - Myalgia [None]
  - Off label use [None]

NARRATIVE: CASE EVENT DATE: 20140401
